FAERS Safety Report 5680142-3 (Version None)
Quarter: 2008Q1

REPORT INFORMATION
  Report Type: 
  Country: None (occurrence: None)
  Receive Date: 20080326
  Receipt Date: 20080128
  Transmission Date: 20080703
  Serious: Yes (Death)
  Sender: FDA-Public Use
  Company Number: US-TYCO HEALTHCARE/MALLINCKRODT-T200800490

PATIENT

DRUGS (6)
  1. ACETAMINOPHEN AND OXYCODONE HCL [Suspect]
  2. QUETIAPINE FUMARATE [Suspect]
  3. DIAZEPAM [Suspect]
  4. VENLAFAXINE HCL [Suspect]
  5. IBUPROFEN [Suspect]
  6. HYDROCHLOROTHIAZIDE [Suspect]

REACTIONS (1)
  - CARDIO-RESPIRATORY ARREST [None]
